FAERS Safety Report 4582922-4 (Version None)
Quarter: 2005Q1

REPORT INFORMATION
  Report Type: 
  Country: None (occurrence: None)
  Receive Date: 20050215
  Receipt Date: 20040526
  Transmission Date: 20050727
  Serious: Yes (Disabling, Other)
  Sender: FDA-Public Use
  Company Number: PHBS2004JP07024

PATIENT
  Age: 44 Year
  Sex: Male

DRUGS (10)
  1. CYCLOPHOSPHAMIDE [Concomitant]
     Dosage: 60 MG/KG/DAY
  2. BUSULFAN [Concomitant]
     Dosage: 4 MG/KG/DAY
  3. METHOTREXATE [Concomitant]
     Dosage: SHORT-COURSE
  4. FLUCONAZOLE [Concomitant]
  5. ACYCLOVIR [Concomitant]
  6. VANCOMYCIN [Concomitant]
  7. PANIPENEM [Concomitant]
  8. SANDIMMUNE [Suspect]
     Indication: BONE MARROW TRANSPLANT
     Dosage: 100 MG/D
     Dates: start: 20040525, end: 20040527
  9. SANDIMMUNE [Suspect]
     Dosage: 190 MG/D (3 MG/KG)
     Dates: start: 20040420, end: 20040514
  10. TACROLIMUS [Concomitant]
     Dates: start: 20040518, end: 20040523

REACTIONS (10)
  - BLOOD CREATININE INCREASED [None]
  - DIZZINESS [None]
  - DRUG LEVEL INCREASED [None]
  - GRAFT VERSUS HOST DISEASE [None]
  - HEADACHE [None]
  - HEART RATE DECREASED [None]
  - HYPERHIDROSIS [None]
  - HYPERTENSION [None]
  - RENAL DISORDER [None]
  - SINUS BRADYCARDIA [None]
